FAERS Safety Report 10503743 (Version 2)
Quarter: 2014Q4

REPORT INFORMATION
  Report Type: Spontaneous
  Country: US (occurrence: None)
  Receive Date: 20141006
  Receipt Date: 20141117
  Transmission Date: 20150528
  Serious: Yes (Other)
  Sender: FDA-Public Use
  Company Number: 2014-US-011962

PATIENT
  Age: 61 Year
  Sex: Female

DRUGS (2)
  1. XYREM [Suspect]
     Active Substance: SODIUM OXYBATE
     Indication: SLEEP DISORDER
     Route: 048
     Dates: start: 20140913
  2. XYREM [Suspect]
     Active Substance: SODIUM OXYBATE
     Route: 048
     Dates: start: 20140913

REACTIONS (6)
  - Eructation [None]
  - Dysgeusia [None]
  - Drug intolerance [None]
  - Systemic lupus erythematosus [None]
  - Off label use [None]
  - Nausea [None]

NARRATIVE: CASE EVENT DATE: 20140914
